FAERS Safety Report 15337729 (Version 1)
Quarter: 2018Q3

REPORT INFORMATION
  Report Type: Spontaneous
  Country: US (occurrence: US)
  Receive Date: 20180831
  Receipt Date: 20180831
  Transmission Date: 20181010
  Serious: No
  Sender: FDA-Public Use
  Company Number: US-ELI_LILLY_AND_COMPANY-US201808015157

PATIENT
  Sex: Female

DRUGS (4)
  1. HUMALOG [Suspect]
     Active Substance: INSULIN LISPRO
     Indication: DIABETES MELLITUS
     Dosage: 3?4 UNITS
     Route: 058
  2. NOVOLIN N [Concomitant]
     Active Substance: INSULIN HUMAN
     Indication: DIABETES MELLITUS
  3. ALLERPLEX [Concomitant]
     Indication: SINUSITIS
  4. HUMALOG [Suspect]
     Active Substance: INSULIN LISPRO
     Dosage: 3?4 UNITS
     Route: 058

REACTIONS (2)
  - Sinusitis [Recovering/Resolving]
  - Blood glucose increased [Unknown]
